FAERS Safety Report 25582746 (Version 1)
Quarter: 2025Q3

REPORT INFORMATION
  Report Type: Spontaneous
  Country: EU (occurrence: EU)
  Receive Date: 20250720
  Receipt Date: 20250720
  Transmission Date: 20251021
  Serious: Yes (Death)
  Sender: PRINSTON PHARMACEUTICAL
  Company Number: EU-PRINSTON PHARMACEUTICAL INC.-2025PRN00227

PATIENT

DRUGS (2)
  1. AMPHETAMINE [Suspect]
     Active Substance: AMPHETAMINE
     Route: 064
  2. METHAMPHETAMINE [Suspect]
     Active Substance: METHAMPHETAMINE
     Route: 064

REACTIONS (2)
  - Foetal death [Fatal]
  - Foetal exposure during pregnancy [Unknown]
